FAERS Safety Report 9329451 (Version 2)
Quarter: 2017Q1

REPORT INFORMATION
  Report Type: Spontaneous
  Country: US (occurrence: US)
  Receive Date: 20130604
  Receipt Date: 20170301
  Transmission Date: 20170429
  Serious: Yes (Other)
  Sender: FDA-Public Use
  Company Number: US-SANOFI-AVENTIS-2012SA093220

PATIENT
  Age: 72 Year
  Sex: Female

DRUGS (8)
  1. SOLOSTAR [Concomitant]
     Active Substance: DEVICE
     Dates: start: 201212
  2. VALIUM [Concomitant]
     Active Substance: DIAZEPAM
  3. METFORMIN [Concomitant]
     Active Substance: METFORMIN HYDROCHLORIDE
  4. LIBRIUM ^HOFFMANN^ [Concomitant]
  5. TOUJEO [Concomitant]
     Active Substance: INSULIN GLARGINE
     Dates: end: 201612
  6. GLYBURIDE. [Concomitant]
     Active Substance: GLYBURIDE
  7. LANTUS SOLOSTAR [Suspect]
     Active Substance: INSULIN GLARGINE
     Indication: TYPE 2 DIABETES MELLITUS
     Dosage: DOSE:26 UNIT(S)
     Route: 065
     Dates: start: 201212
  8. LANTUS SOLOSTAR [Suspect]
     Active Substance: INSULIN GLARGINE
     Indication: TYPE 2 DIABETES MELLITUS
     Dosage: DOSE:17 UNIT(S)
     Route: 065
     Dates: start: 20170107, end: 20170107

REACTIONS (5)
  - Chest pain [Unknown]
  - Headache [Unknown]
  - Tooth disorder [Unknown]
  - Dizziness [Unknown]
  - Arrhythmia [Unknown]

NARRATIVE: CASE EVENT DATE: 20170107
